FAERS Safety Report 6244811-9 (Version None)
Quarter: 2009Q2

REPORT INFORMATION
  Report Type: 
  Country: None (occurrence: None)
  Receive Date: 20090625
  Receipt Date: 20090619
  Transmission Date: 20091009
  Serious: Yes (Hospitalization)
  Sender: FDA-Public Use
  Company Number: KP-WATSON-2009-04722

PATIENT
  Age: 51 Year
  Sex: Male

DRUGS (1)
  1. FORTAMET [Suspect]
     Indication: BLOOD GLUCOSE INCREASED
     Dosage: 850 MG, DAILY

REACTIONS (2)
  - ENCEPHALOPATHY [None]
  - LABELLED DRUG-DISEASE INTERACTION MEDICATION ERROR [None]
